FAERS Safety Report 7626962-7 (Version None)
Quarter: 2011Q3

REPORT INFORMATION
  Report Type: 
  Country: None (occurrence: None)
  Receive Date: 20110721
  Receipt Date: 20110714
  Transmission Date: 20111222
  Serious: Yes (Other)
  Sender: FDA-Public Use
  Company Number: CA-PFIZER INC-2011159752

PATIENT
  Age: 87 Year
  Sex: Female

DRUGS (4)
  1. BETOPTIC [Concomitant]
     Dosage: IN BOTH EYES, 2X/DAY
  2. XALATAN [Suspect]
     Indication: GLAUCOMA
     Dosage: 1 GTT IN BOTH EYES, 1X/DAY
     Route: 047
  3. XALATAN [Suspect]
     Dosage: 1 GTT IN RIGHT EYE, 1X/DAY
     Route: 047
  4. NAPHCON [Concomitant]
     Dosage: LEFT EYE

REACTIONS (2)
  - EYE INFECTION VIRAL [None]
  - INTRAOCULAR PRESSURE DECREASED [None]
